FAERS Safety Report 21286423 (Version 9)
Quarter: 2023Q1

REPORT INFORMATION
  Report Type: Spontaneous
  Country: DE (occurrence: DE)
  Receive Date: 20220902
  Receipt Date: 20230308
  Transmission Date: 20230418
  Serious: Yes (Life-Threatening, Hospitalization, Other)
  Sender: FDA-Public Use
  Company Number: DE-NOVARTISPH-NVSC2022DE192417

PATIENT
  Age: 65 Year
  Sex: Female
  Weight: 91 kg

DRUGS (9)
  1. CARBOPLATIN [Suspect]
     Active Substance: CARBOPLATIN
     Indication: Breast cancer female
     Dosage: UNK, Q3W (5 AUC, EVERY 21 DAYS)
     Route: 042
     Dates: start: 20220706, end: 20221118
  2. PACLITAXEL [Suspect]
     Active Substance: PACLITAXEL
     Indication: Breast cancer female
     Dosage: 80MG/MX2, QW
     Route: 042
     Dates: start: 20220706, end: 20220915
  3. PACLITAXEL [Suspect]
     Active Substance: PACLITAXEL
     Dosage: 80MG/MX2, QW
     Route: 042
     Dates: end: 20221118
  4. PACLITAXEL [Suspect]
     Active Substance: PACLITAXEL
     Dosage: 80MG/MX2, QW
     Route: 042
     Dates: end: 20221209
  5. PERTUZUMAB [Suspect]
     Active Substance: PERTUZUMAB
     Indication: Breast cancer female
     Dosage: 840 MG, Q3W
     Route: 042
     Dates: start: 20220706
  6. PERTUZUMAB [Suspect]
     Active Substance: PERTUZUMAB
     Dosage: 420 MG, Q3W
     Route: 042
     Dates: end: 20221118
  7. PERTUZUMAB [Suspect]
     Active Substance: PERTUZUMAB
     Dosage: 420 MG, Q3W
     Route: 042
     Dates: end: 20221209
  8. PERTUZUMAB [Suspect]
     Active Substance: PERTUZUMAB
     Dosage: 420 MG, TIW
     Route: 042
     Dates: end: 20220915
  9. OLMESARTAN [Concomitant]
     Active Substance: OLMESARTAN
     Indication: Hypertension
     Dosage: 10 MG,QD
     Route: 048

REACTIONS (11)
  - Acute myocardial infarction [Not Recovered/Not Resolved]
  - Stress cardiomyopathy [Recovered/Resolved]
  - Staphylococcal bacteraemia [Not Recovered/Not Resolved]
  - Device related infection [Recovered/Resolved]
  - Infection [Not Recovered/Not Resolved]
  - Acute kidney injury [Recovered/Resolved]
  - Neutropenia [Recovered/Resolved]
  - Anaemia [Recovered/Resolved]
  - Diarrhoea [Recovered/Resolved]
  - Pyrexia [Unknown]
  - Superficial vein thrombosis [Recovered/Resolved]

NARRATIVE: CASE EVENT DATE: 20220721
